FAERS Safety Report 10229163 (Version 1)
Quarter: 2014Q2

REPORT INFORMATION
  Report Type: Report from Study
  Country: US (occurrence: US)
  Receive Date: 20140611
  Receipt Date: 20140611
  Transmission Date: 20141212
  Serious: Yes (Other)
  Sender: FDA-Public Use
  Company Number: US-ABBVIE-14P-163-1244798-00

PATIENT
  Sex: Female

DRUGS (5)
  1. LUPRON DEPOT [Suspect]
     Indication: ENDOMETRIOSIS
  2. LUPRON DEPOT [Suspect]
     Dates: start: 201306
  3. LUPRON DEPOT [Suspect]
     Indication: ENDOMETRIOSIS
  4. LUPRON DEPOT [Suspect]
     Dates: start: 20140530
  5. NORETHINDRONE ACETATE [Concomitant]
     Indication: PRODUCT USED FOR UNKNOWN INDICATION

REACTIONS (4)
  - Uterine leiomyoma [Recovered/Resolved]
  - Bone disorder [Not Recovered/Not Resolved]
  - Visual impairment [Not Recovered/Not Resolved]
  - Cyst [Unknown]
